FAERS Safety Report 12089431 (Version 2)
Quarter: 2016Q1

REPORT INFORMATION
  Report Type: Report from Study
  Country: JP (occurrence: JP)
  Receive Date: 20160218
  Receipt Date: 20160311
  Transmission Date: 20160526
  Serious: Yes (Death, Hospitalization)
  Sender: FDA-Public Use
  Company Number: JP-WATSON-2016-02913

PATIENT
  Age: 90 Year
  Sex: Male

DRUGS (4)
  1. RAPAFLO [Suspect]
     Active Substance: SILODOSIN
     Indication: DYSURIA
     Dosage: 8 MG, DAILY
     Route: 048
     Dates: start: 20151005, end: 20151026
  2. TADALAFIL [Concomitant]
     Active Substance: TADALAFIL
     Indication: LOWER URINARY TRACT SYMPTOMS
     Dosage: 5 MG, DAILY
     Route: 048
     Dates: end: 20151026
  3. RAPAFLO [Suspect]
     Active Substance: SILODOSIN
     Indication: BENIGN PROSTATIC HYPERPLASIA
  4. PROSTAL                            /00093602/ [Concomitant]
     Indication: LOWER URINARY TRACT SYMPTOMS
     Dosage: 50 MG, DAILY
     Route: 048
     Dates: end: 20151026

REACTIONS (2)
  - Death [Fatal]
  - Hospitalisation [Unknown]

NARRATIVE: CASE EVENT DATE: 201511
